FAERS Safety Report 5663650-0 (Version None)
Quarter: 2008Q1

REPORT INFORMATION
  Report Type: 
  Country: None (occurrence: None)
  Receive Date: 20080310
  Receipt Date: 20080222
  Transmission Date: 20080703
  Serious: Yes (Death, Hospitalization)
  Sender: FDA-Public Use
  Company Number: 2008US000679

PATIENT
  Age: 2 Year

DRUGS (3)
  1. PROGRAF [Suspect]
     Indication: RENAL TRANSPLANT
  2. MYCOPHENOLATE MOFETIL [Concomitant]
  3. CORTICOSTEROIDS [Concomitant]

REACTIONS (4)
  - ADENOVIRUS INFECTION [None]
  - FUNGAL SEPSIS [None]
  - INTESTINAL PERFORATION [None]
  - PSEUDOMONAL BACTERAEMIA [None]
